FAERS Safety Report 15566401 (Version 1)
Quarter: 2018Q4

REPORT INFORMATION
  Report Type: Spontaneous
  Country: NL (occurrence: NL)
  Receive Date: 20181030
  Receipt Date: 20181030
  Transmission Date: 20190205
  Serious: Yes (Hospitalization)
  Sender: FDA-Public Use
  Company Number: NL-PFIZER INC-2018407638

PATIENT
  Age: 75 Year
  Sex: Female

DRUGS (14)
  1. LANREOTIDE [Concomitant]
     Active Substance: LANREOTIDE
     Dosage: 120 MG, UNK
  2. PARACETAMOL [Concomitant]
     Active Substance: ACETAMINOPHEN
     Dosage: 1000 MG, 4X/DAY
     Route: 048
  3. SITAGLIPTIN METFORMIN [Concomitant]
     Active Substance: METFORMIN HYDROCHLORIDE\SITAGLIPTIN PHOSPHATE
     Dosage: 1 DF, 2X/DAY
     Route: 048
  4. SOMAVERT [Suspect]
     Active Substance: PEGVISOMANT
     Indication: ACROMEGALY
     Dosage: UNK
     Dates: start: 200408
  5. SOMAVERT [Suspect]
     Active Substance: PEGVISOMANT
     Dosage: 60 MG, 2X/WEEK
     Route: 058
     Dates: start: 201703
  6. POLYSTYRENE SULFONATE SODIUM [Concomitant]
     Active Substance: SODIUM POLYSTYRENE SULFONATE
     Dosage: 15 G, 3X/WEEK
  7. PRAVASTATIN. [Concomitant]
     Active Substance: PRAVASTATIN
     Dosage: 40 MG, 1X/DAY
     Route: 048
  8. PANTOPRAZOL [PANTOPRAZOLE] [Concomitant]
     Dosage: 20 MG, 1X/DAY
     Route: 048
  9. MACROGOL [Concomitant]
     Active Substance: POLYETHYLENE GLYCOLS
     Dosage: 1 DF, 1X/DAY
     Route: 048
  10. NAPROXEN. [Concomitant]
     Active Substance: NAPROXEN
     Dosage: 500 MG, 2X/DAY (AS NEEDED)
     Route: 048
  11. PERINDOPRIL ERBUMINE. [Concomitant]
     Active Substance: PERINDOPRIL ERBUMINE
     Dosage: 4 MG, 1X/DAY
     Route: 048
  12. DALTEPARIN [Concomitant]
     Active Substance: DALTEPARIN
     Dosage: 5000 IU, 1X/DAY
  13. OXYCODON [Concomitant]
     Active Substance: OXYCODONE
     Dosage: 5 MG, 1-6X/DAY
     Route: 048
  14. OXYCODON [Concomitant]
     Active Substance: OXYCODONE
     Dosage: 5 MG, 2X/DAY
     Route: 048

REACTIONS (2)
  - Joint injury [Recovering/Resolving]
  - Cartilage injury [Recovering/Resolving]
